FAERS Safety Report 21710147 (Version 1)
Quarter: 2022Q4

REPORT INFORMATION
  Report Type: Spontaneous
  Country: US (occurrence: US)
  Receive Date: 20221211
  Receipt Date: 20221211
  Transmission Date: 20230113
  Serious: No
  Sender: FDA-Public Use
  Company Number: US-ELI_LILLY_AND_COMPANY-US202211012631

PATIENT
  Sex: Female

DRUGS (2)
  1. HUMALOG [Suspect]
     Active Substance: INSULIN LISPRO
     Indication: Type 1 diabetes mellitus
     Dosage: 90 U, DAILY
     Route: 058
  2. HUMALOG [Suspect]
     Active Substance: INSULIN LISPRO
     Dosage: 90 U, DAILY
     Route: 058

REACTIONS (3)
  - Wrong patient received product [Unknown]
  - Blood glucose increased [Recovered/Resolved]
  - Drug ineffective [Unknown]
